FAERS Safety Report 10273979 (Version 1)
Quarter: 2014Q2

REPORT INFORMATION
  Report Type: Spontaneous
  Country: US (occurrence: None)
  Receive Date: 20140630
  Receipt Date: 20140630
  Transmission Date: 20141212
  Serious: Yes (Death)
  Sender: FDA-Public Use
  Company Number: None

PATIENT
  Age: 69 Year
  Sex: Male

DRUGS (1)
  1. TARGRETIN 75MG VALEANT PHARMA [Suspect]
     Route: 048
     Dates: start: 20111207, end: 20140613

REACTIONS (2)
  - Life support [None]
  - Post procedural complication [None]
